FAERS Safety Report 8459949-5 (Version None)
Quarter: 2012Q2

REPORT INFORMATION
  Report Type: 
  Country: None (occurrence: None)
  Receive Date: 20120622
  Receipt Date: 20120620
  Transmission Date: 20120825
  Serious: Yes (Life-Threatening, Hospitalization)
  Sender: FDA-Public Use
  Company Number: PHHY2012CH053143

PATIENT
  Age: 39 Year
  Sex: Female

DRUGS (2)
  1. MEXILETINE HYDROCHLORIDE [Suspect]
  2. TEGRETOL [Suspect]
     Dosage: 200 MG, UNK

REACTIONS (3)
  - VENTRICULAR TACHYCARDIA [None]
  - ELECTROCARDIOGRAM QT PROLONGED [None]
  - BLOOD CREATININE INCREASED [None]
